FAERS Safety Report 13591530 (Version 3)
Quarter: 2017Q3

REPORT INFORMATION
  Report Type: Spontaneous
  Country: US (occurrence: US)
  Receive Date: 20170529
  Receipt Date: 20170808
  Transmission Date: 20171127
  Serious: No
  Sender: FDA-Public Use
  Company Number: US-PFIZER INC-2017232584

PATIENT
  Age: 80 Year
  Sex: Female
  Weight: 60.33 kg

DRUGS (6)
  1. AZILECT [Concomitant]
     Active Substance: RASAGILINE MESYLATE
     Dosage: UNK
  2. IBRANCE [Suspect]
     Active Substance: PALBOCICLIB
     Dosage: UNK
  3. LETROZOLE. [Concomitant]
     Active Substance: LETROZOLE
     Indication: NEOPLASM MALIGNANT
     Dosage: 2.5 MG, 1 PILL A DAY
  4. IBRANCE [Suspect]
     Active Substance: PALBOCICLIB
     Indication: BONE CANCER
     Dosage: 125 MG, 1X/DAY
     Route: 048
     Dates: start: 20170413
  5. SINEMET [Concomitant]
     Active Substance: CARBIDOPA\LEVODOPA
     Indication: PARKINSON^S DISEASE
     Dosage: [25MG CARBIDOPA]/[100MG LEVODOPA]
  6. ARICEPT [Concomitant]
     Active Substance: DONEPEZIL HYDROCHLORIDE
     Dosage: 5 MG, TABLET, ORALLY
     Route: 048

REACTIONS (4)
  - Product use in unapproved indication [Unknown]
  - Full blood count decreased [Unknown]
  - Red blood cell count decreased [Unknown]
  - White blood cell count decreased [Recovering/Resolving]

NARRATIVE: CASE EVENT DATE: 20170425
